FAERS Safety Report 8414934-4 (Version None)
Quarter: 2012Q2

REPORT INFORMATION
  Report Type: 
  Country: None (occurrence: None)
  Receive Date: 20120601
  Receipt Date: 20120601
  Transmission Date: 20120825
  Serious: Yes (Hospitalization, Disabling)
  Sender: FDA-Public Use
  Company Number: None

PATIENT
  Age: 77 Year
  Sex: Male
  Weight: 70.3075 kg

DRUGS (1)
  1. FINASTERIDE [Suspect]
     Indication: PROSTATE CANCER
     Dosage: 5 MG 1 DAILY PO
     Route: 048
     Dates: start: 20111122, end: 20120223

REACTIONS (6)
  - LOSS OF CONSCIOUSNESS [None]
  - FALL [None]
  - MULTIPLE INJURIES [None]
  - NAUSEA [None]
  - DYSPNOEA [None]
  - DIZZINESS [None]
